FAERS Safety Report 9669465 (Version 2)
Quarter: 2014Q1

REPORT INFORMATION
  Report Type: Spontaneous
  Country: GB (occurrence: GB)
  Receive Date: 20131105
  Receipt Date: 20140318
  Transmission Date: 20141002
  Serious: Yes (Other)
  Sender: FDA-Public Use
  Company Number: GB-GILEAD-2013-0086717

PATIENT
  Age: 34 Year
  Sex: Female

DRUGS (7)
  1. TRUVADA [Suspect]
     Indication: HIV INFECTION
     Dosage: 1 DF, QD
     Route: 048
  2. KALETRA [Suspect]
     Indication: HIV INFECTION
     Dosage: 2 DF, BID
     Route: 064
     Dates: end: 201302
  3. RALTEGRAVIR [Suspect]
     Indication: HIV INFECTION
     Dosage: 400 MG, BID
     Route: 048
     Dates: start: 20130319
  4. BUCCASTEM [Concomitant]
     Indication: NAUSEA
     Route: 048
  5. METHYLDOPA [Concomitant]
     Indication: HYPERTENSION
     Route: 048
  6. METOCLOPRAMIDE [Concomitant]
     Indication: NAUSEA
     Route: 048
  7. LABETALOL [Concomitant]
     Route: 048

REACTIONS (2)
  - Hepatotoxicity [Unknown]
  - Premature delivery [Recovered/Resolved]
